FAERS Safety Report 12728083 (Version 1)
Quarter: 2016Q3

REPORT INFORMATION
  Report Type: Spontaneous
  Country: FR (occurrence: FR)
  Receive Date: 20160909
  Receipt Date: 20160909
  Transmission Date: 20161109
  Serious: Yes (Death, Hospitalization, Other)
  Sender: FDA-Public Use
  Company Number: FR-GLAXOSMITHKLINE-FR2016GSK131081

PATIENT
  Age: 64 Year
  Sex: Female
  Weight: 65 kg

DRUGS (12)
  1. CEFTRIAXONE. [Suspect]
     Active Substance: CEFTRIAXONE
     Dosage: 2 G, UNK
     Route: 042
     Dates: start: 201512, end: 20160127
  2. CORDARONE [Suspect]
     Active Substance: AMIODARONE HYDROCHLORIDE
     Dosage: 200 MG, 1D
  3. FLAGYL [Suspect]
     Active Substance: METRONIDAZOLE\METRONIDAZOLE HYDROCHLORIDE
     Indication: PROPHYLAXIS
     Dosage: 500 MG, TID
     Dates: start: 201512, end: 20160127
  4. INEXIUM [Suspect]
     Active Substance: ESOMEPRAZOLE
     Dosage: 40 MG, UNK
     Route: 048
  5. ZYVOXID [Suspect]
     Active Substance: LINEZOLID
     Indication: PNEUMONIA
     Dosage: UNK
     Dates: start: 20160107, end: 20160127
  6. CIPROFLOXACINE KABI [Suspect]
     Active Substance: CIPROFLOXACIN
     Indication: PNEUMONIA
     Dosage: UNK
     Dates: start: 20160114, end: 20160127
  7. LEXOMIL [Concomitant]
     Active Substance: BROMAZEPAM
     Dosage: UNK
  8. HEPARIN [Suspect]
     Active Substance: HEPARIN SODIUM
     Indication: PRODUCT USED FOR UNKNOWN INDICATION
  9. PREVISCAN (FLUINDIONE) [Suspect]
     Active Substance: FLUINDIONE
     Dosage: 20 MG, UNK
     Route: 048
  10. ARGATROBAN. [Concomitant]
     Active Substance: ARGATROBAN
     Dosage: UNK
     Dates: start: 20160123, end: 20160127
  11. CLAVENTIN [Suspect]
     Active Substance: CLAVULANATE POTASSIUM\TICARCILLIN DISODIUM
     Indication: PRODUCT USED FOR UNKNOWN INDICATION
     Dosage: UNK
     Dates: start: 20160107, end: 20160127
  12. BACTRIM [Suspect]
     Active Substance: SULFAMETHOXAZOLE\TRIMETHOPRIM
     Indication: PNEUMONIA
     Dosage: UNK
     Dates: start: 20160114, end: 20160127

REACTIONS (5)
  - Death [Fatal]
  - Thrombocytopenia [Recovered/Resolved]
  - Anaemia [Not Recovered/Not Resolved]
  - Hepatocellular injury [Not Recovered/Not Resolved]
  - Condition aggravated [Recovered/Resolved]

NARRATIVE: CASE EVENT DATE: 20160104
